FAERS Safety Report 21044516 (Version 1)
Quarter: 2022Q3

REPORT INFORMATION
  Report Type: Spontaneous
  Country: FR (occurrence: FR)
  Receive Date: 20220705
  Receipt Date: 20220705
  Transmission Date: 20221027
  Serious: Yes (Other)
  Sender: FDA-Public Use
  Company Number: FR-ELI_LILLY_AND_COMPANY-FR202206012593

PATIENT
  Age: 72 Year
  Sex: Female

DRUGS (1)
  1. HUMALOG [Suspect]
     Active Substance: INSULIN LISPRO
     Indication: Type 2 diabetes mellitus
     Dosage: UNK UNK, TID
     Route: 065
     Dates: start: 2017

REACTIONS (2)
  - Age-related macular degeneration [Unknown]
  - Visual impairment [Unknown]

NARRATIVE: CASE EVENT DATE: 20211001
